FAERS Safety Report 10262082 (Version 2)
Quarter: 2014Q2

REPORT INFORMATION
  Report Type: Report from Study
  Country: US (occurrence: US)
  Receive Date: 20140626
  Receipt Date: 20140626
  Transmission Date: 20141212
  Serious: Yes (Other)
  Sender: FDA-Public Use
  Company Number: US-VIIV HEALTHCARE LIMITED-A0617351B

PATIENT
  Age: 32 Year
  Sex: Female

DRUGS (4)
  1. EPZICOM [Suspect]
     Indication: HIV INFECTION
     Dosage: 1TAB PER DAY
     Route: 048
  2. RETROVIR [Suspect]
     Indication: HIV INFECTION
     Route: 042
     Dates: start: 20060724, end: 20060724
  3. REYATAZ [Concomitant]
     Indication: HIV INFECTION
     Dosage: 300MG PER DAY
     Route: 048
  4. RITONAVIR [Concomitant]
     Dosage: 100MG PER DAY
     Route: 048

REACTIONS (2)
  - Diabetes mellitus [Unknown]
  - Exposure during pregnancy [Unknown]
